FAERS Safety Report 21853754 (Version 2)
Quarter: 2023Q1

REPORT INFORMATION
  Report Type: Spontaneous
  Country: US (occurrence: US)
  Receive Date: 20230112
  Receipt Date: 20230214
  Transmission Date: 20230418
  Serious: Yes (Hospitalization, Other)
  Sender: FDA-Public Use
  Company Number: US-BIOVITRUM-2023US00625

PATIENT
  Sex: Male

DRUGS (2)
  1. SYNAGIS [Suspect]
     Active Substance: PALIVIZUMAB
     Indication: Product used for unknown indication
     Dosage: 100MG/ML
  2. SYNAGIS [Suspect]
     Active Substance: PALIVIZUMAB

REACTIONS (3)
  - Pneumonia [Unknown]
  - Rash [Unknown]
  - Product dose omission issue [Unknown]
